FAERS Safety Report 6434417-0 (Version None)
Quarter: 2009Q4

REPORT INFORMATION
  Report Type: 
  Country: None (occurrence: None)
  Receive Date: 20091110
  Receipt Date: 20091030
  Transmission Date: 20100525
  Serious: Yes (Death, Hospitalization)
  Sender: FDA-Public Use
  Company Number: US-BAXTER-2009BH016762

PATIENT
  Sex: Male

DRUGS (4)
  1. DIANEAL [Suspect]
     Indication: PERITONEAL DIALYSIS
     Route: 033
     Dates: start: 20070101, end: 20090930
  2. DIANEAL [Suspect]
     Route: 033
     Dates: start: 20070101, end: 20090930
  3. DIANEAL [Suspect]
     Indication: PERITONEAL DIALYSIS
     Route: 033
     Dates: start: 20070101, end: 20090930
  4. DIANEAL [Suspect]
     Route: 033
     Dates: start: 20070101, end: 20090930

REACTIONS (5)
  - CARDIOMYOPATHY [None]
  - GENERAL PHYSICAL HEALTH DETERIORATION [None]
  - SEPTIC SHOCK [None]
  - SKIN LESION [None]
  - TIBIA FRACTURE [None]
